FAERS Safety Report 17658099 (Version 1)
Quarter: 2020Q2

REPORT INFORMATION
  Report Type: Spontaneous
  Country: US (occurrence: US)
  Receive Date: 20200411
  Receipt Date: 20200411
  Transmission Date: 20200713
  Serious: Yes (Other)
  Sender: FDA-Public Use
  Company Number: NVSC2020US096412

PATIENT
  Sex: Male

DRUGS (2)
  1. MEKINIST [Suspect]
     Active Substance: TRAMETINIB DIMETHYL SULFOXIDE
     Indication: THYROID CANCER
     Route: 065
  2. TAFINLAR [Suspect]
     Active Substance: DABRAFENIB MESYLATE
     Indication: THYROID CANCER
     Dosage: 150 MG, BID
     Route: 048

REACTIONS (8)
  - Blood pressure decreased [Unknown]
  - Blood test abnormal [Unknown]
  - Photosensitivity reaction [Unknown]
  - Cardiac failure congestive [Unknown]
  - Liver disorder [Unknown]
  - Dysstasia [Unknown]
  - Fatigue [Unknown]
  - Concomitant disease aggravated [Unknown]
